FAERS Safety Report 4837225-7 (Version None)
Quarter: 2005Q4

REPORT INFORMATION
  Report Type: 
  Country: None (occurrence: None)
  Receive Date: 20051122
  Receipt Date: 20051115
  Transmission Date: 20060501
  Serious: Yes (Congenital Anomaly)
  Sender: FDA-Public Use
  Company Number: TAP2005Q01872

PATIENT
  Age: 31 Month
  Sex: Female

DRUGS (5)
  1. LUPRON DEPOT [Suspect]
     Indication: ENDOMETRIOSIS
     Dosage: SEE IMAGE
     Route: 064
     Dates: start: 20020412, end: 20020923
  2. LUPRON DEPOT [Suspect]
     Indication: ENDOMETRIOSIS
     Dosage: SEE IMAGE
     Route: 064
     Dates: start: 20021118, end: 20021118
  3. NORETHINDRONE                           (NORETHISTERONE) (5 MILLIGRAM, [Concomitant]
  4. UNSPECIFIED ASTHMA INHALERS (INHALANT) [Concomitant]
  5. ORTHO CYCLEN                            (CILEST) [Concomitant]

REACTIONS (5)
  - CEREBRAL PALSY [None]
  - DRUG EXPOSURE DURING PREGNANCY [None]
  - FOETAL DISORDER [None]
  - PREMATURE BABY [None]
  - TWIN PREGNANCY [None]
